FAERS Safety Report 5126893-0 (Version None)
Quarter: 2006Q4

REPORT INFORMATION
  Report Type: 
  Country: None (occurrence: None)
  Receive Date: 20060830
  Receipt Date: 20060406
  Transmission Date: 20070319
  Serious: Yes (Other)
  Sender: FDA-Public Use
  Company Number: US200604001442

PATIENT
  Sex: Male

DRUGS (1)
  1. SYMBYAX [Suspect]

REACTIONS (1)
  - CONVULSION [None]
